FAERS Safety Report 6160243-6 (Version None)
Quarter: 2009Q2

REPORT INFORMATION
  Report Type: 
  Country: None (occurrence: None)
  Receive Date: 20090420
  Receipt Date: 20090414
  Transmission Date: 20091009
  Serious: Yes (Other)
  Sender: FDA-Public Use
  Company Number: B0569618A

PATIENT
  Age: 45 Year

DRUGS (11)
  1. LAMIVUDINE [Suspect]
     Indication: ANTIRETROVIRAL THERAPY
  2. VIDEX [Suspect]
     Indication: ANTIRETROVIRAL THERAPY
  3. STAVUDINE [Suspect]
     Indication: ANTIRETROVIRAL THERAPY
  4. LOPINAVIR [Suspect]
     Indication: ANTIRETROVIRAL THERAPY
  5. RITONAVIR [Suspect]
     Indication: ANTIRETROVIRAL THERAPY
  6. NEVIRAPINE [Suspect]
     Indication: ANTIRETROVIRAL THERAPY
  7. FLUVASTATIN SODIUM [Concomitant]
  8. FENOFIBRATE [Concomitant]
  9. OMEGA-3-ACID ETHYL ESTERS [Concomitant]
  10. ATORVASTATIN [Concomitant]
  11. EZETIMIBE [Concomitant]

REACTIONS (3)
  - BLOOD CHOLESTEROL INCREASED [None]
  - LIPODYSTROPHY ACQUIRED [None]
  - MYOCARDIAL INFARCTION [None]
